FAERS Safety Report 4307503-9 (Version None)
Quarter: 2004Q1

REPORT INFORMATION
  Report Type: 
  Country: None (occurrence: None)
  Receive Date: 20040226
  Receipt Date: 20040218
  Transmission Date: 20041129
  Serious: Yes (Death, Hospitalization)
  Sender: FDA-Public Use
  Company Number: 2003180936FR

PATIENT
  Age: 63 Year
  Sex: Male

DRUGS (19)
  1. ANSATIPINE (RIFABUTIN)  CAPSULE [Suspect]
     Indication: MYCOBACTERIAL INFECTION
     Dosage: 150 MG, TID, ORAL
     Route: 048
     Dates: start: 20030813, end: 20030908
  2. EPIVIR [Suspect]
     Indication: HIV INFECTION
     Dosage: 300 MG, QD, ORAL
     Route: 048
     Dates: start: 20030826, end: 20030908
  3. EPIVIR [Suspect]
     Indication: HIV INFECTION
     Dosage: 300 MG, QD, ORAL
     Route: 048
     Dates: start: 20030930
  4. IZILOR (MOXIFLOXACINE) [Suspect]
     Indication: MYCOBACTERIAL INFECTION
     Dosage: 400 MG, QD, ORAL
     Route: 048
     Dates: start: 20030813, end: 20030908
  5. BACTRIM [Suspect]
     Dosage: 1 DF, QD, ORAL
     Dates: start: 20030813, end: 20030908
  6. CLARITHROMYCIN [Suspect]
     Dosage: 500 MG, BID, ORAL
     Route: 048
     Dates: start: 20030813, end: 20030908
  7. ZERIT [Suspect]
     Indication: MYCOBACTERIAL INFECTION
     Dosage: ORAL
     Dates: start: 20030826, end: 20030908
  8. ZERIT [Suspect]
     Indication: MYCOBACTERIAL INFECTION
     Dosage: ORAL
     Dates: start: 20030930
  9. MYAMBUTOL [Suspect]
     Indication: MYCOBACTERIAL INFECTION
     Dosage: 300 MG DAILY, ORAL
     Route: 048
     Dates: start: 20030813, end: 20030908
  10. MYAMBUTOL [Suspect]
     Indication: MYCOBACTERIAL INFECTION
     Dosage: 300 MG DAILY, ORAL
     Route: 048
     Dates: start: 20030930
  11. VIREAD [Suspect]
     Indication: HIV INFECTION
     Dosage: 1 DF, QD, ORAL
     Route: 048
     Dates: start: 20030826, end: 20030908
  12. PROPRANOLOL [Concomitant]
  13. AMLODIPINE BESYLATE [Concomitant]
  14. ASPEGIC 325 [Concomitant]
  15. RITONAVIR [Concomitant]
  16. SAQUINAVIR [Concomitant]
  17. CETIRIZINE HCL [Concomitant]
  18. CROMOLYN SODIUM [Concomitant]
  19. MONTELUKAST (MONTELUKAST) [Concomitant]

REACTIONS (11)
  - EOSINOPHILIA [None]
  - HIV TEST POSITIVE [None]
  - HYPERSENSITIVITY [None]
  - HYPERTENSIVE NEPHROPATHY [None]
  - PROTEIN URINE PRESENT [None]
  - PURPURA [None]
  - PYREXIA [None]
  - RASH ERYTHEMATOUS [None]
  - RASH MACULO-PAPULAR [None]
  - TOXIC SKIN ERUPTION [None]
  - URTICARIA [None]
